FAERS Safety Report 4493415-7 (Version None)
Quarter: 2004Q4

REPORT INFORMATION
  Report Type: 
  Country: None (occurrence: None)
  Receive Date: 20041102
  Receipt Date: 20041026
  Transmission Date: 20050328
  Serious: Yes (Death, Life-Threatening, Disabling)
  Sender: FDA-Public Use
  Company Number: A0531315A

PATIENT
  Age: 29 Year
  Sex: Female

DRUGS (3)
  1. WELLBUTRIN [Suspect]
     Indication: DEPRESSION
     Dosage: 300 MG / PER DAY / ORAL
     Route: 048
     Dates: start: 20040827
  2. ETHANOL (ALCOHOL) [Suspect]
  3. CITALOPRAM HYDROBROMIDE [Concomitant]

REACTIONS (1)
  - INTENTIONAL OVERDOSE [None]
